FAERS Safety Report 5036809-3 (Version None)
Quarter: 2006Q2

REPORT INFORMATION
  Report Type: 
  Country: None (occurrence: None)
  Receive Date: 20060628
  Receipt Date: 20060607
  Transmission Date: 20061013
  Serious: Yes (Hospitalization)
  Sender: FDA-Public Use
  Company Number: HQWYE032408JUN06

PATIENT
  Sex: Male
  Weight: 54 kg

DRUGS (8)
  1. ENBREL [Suspect]
     Indication: RHEUMATOID ARTHRITIS
     Route: 058
     Dates: start: 20060210, end: 20060418
  2. SULFASALAZINE [Concomitant]
     Route: 048
  3. CEROCRAL [Concomitant]
     Indication: CEREBRAL INFARCTION
     Route: 048
  4. SALOBEL [Concomitant]
     Indication: HYPERURICAEMIA
  5. PANALDINE [Concomitant]
     Indication: CEREBRAL INFARCTION
     Route: 048
  6. LIPITOR [Concomitant]
     Indication: HYPERLIPIDAEMIA
     Route: 048
  7. BUCILLAMINE [Concomitant]
     Indication: RHEUMATOID ARTHRITIS
     Route: 048
  8. RELIFEN [Concomitant]
     Indication: RHEUMATOID ARTHRITIS

REACTIONS (4)
  - CHOLANGITIS SUPPURATIVE [None]
  - ENTEROCOCCAL INFECTION [None]
  - KLEBSIELLA SEPSIS [None]
  - RENAL FAILURE ACUTE [None]
